FAERS Safety Report 6131894-X (Version None)
Quarter: 2009Q1

REPORT INFORMATION
  Report Type: 
  Country: None (occurrence: None)
  Receive Date: 20090325
  Receipt Date: 20090319
  Transmission Date: 20090719
  Serious: Yes (Death)
  Sender: FDA-Public Use
  Company Number: US-AVENTIS-200912158US

PATIENT
  Age: 77 Year
  Sex: Male

DRUGS (10)
  1. LOVENOX [Suspect]
     Indication: THROMBOSIS PROPHYLAXIS
     Dates: start: 20090305, end: 20090318
  2. LOVENOX [Suspect]
     Dates: start: 20090305, end: 20090318
  3. OTHER BETA-LACTAM ANTIBACTERIALS [Concomitant]
     Dosage: DOSE: UNK
  4. COUMADIN [Concomitant]
     Dosage: DOSE: UNK
  5. VANCOMYCIN [Concomitant]
     Dosage: DOSE: UNK
  6. LISINOPRIL [Concomitant]
     Dosage: DOSE: UNK
  7. PEPCID [Concomitant]
     Dosage: DOSE: UNK
  8. LASIX [Concomitant]
     Dosage: DOSE: UNK
  9. REGLAN [Concomitant]
     Dosage: DOSE: UNK
  10. POTASSIUM CHLORIDE [Concomitant]
     Dosage: DOSE: UNK

REACTIONS (2)
  - DRUG INEFFECTIVE [None]
  - PULMONARY EMBOLISM [None]
